FAERS Safety Report 8058813-3 (Version None)
Quarter: 2012Q1

REPORT INFORMATION
  Report Type: 
  Country: None (occurrence: None)
  Receive Date: 20120119
  Receipt Date: 20120119
  Transmission Date: 20120608
  Serious: Yes (Hospitalization)
  Sender: FDA-Public Use
  Company Number: None

PATIENT
  Age: 71 Year
  Sex: Female
  Weight: 64.2 kg

DRUGS (11)
  1. PRILOSEC [Concomitant]
  2. METFORMIN [Concomitant]
  3. DIOVAN [Concomitant]
  4. ZOCOR [Concomitant]
  5. COMBIVENT [Concomitant]
  6. VITAMIN D [Concomitant]
  7. VITAMIN D [Concomitant]
  8. NAPROXEN [Concomitant]
  9. NEURONTIN [Suspect]
     Indication: BACK PAIN
     Dosage: 600MG ONCE PO RECENT
     Route: 048
  10. LOPRESSOR [Concomitant]
  11. OXYBUTYNIN [Concomitant]

REACTIONS (5)
  - MEMORY IMPAIRMENT [None]
  - ACCIDENTAL EXPOSURE [None]
  - FALL [None]
  - MYOCLONUS [None]
  - DYSKINESIA [None]
